FAERS Safety Report 25041150 (Version 1)
Quarter: 2025Q1

REPORT INFORMATION
  Report Type: Spontaneous
  Country: US (occurrence: US)
  Receive Date: 20250305
  Receipt Date: 20250305
  Transmission Date: 20250409
  Serious: Yes (Life-Threatening, Hospitalization, Other)
  Sender: RANBAXY
  Company Number: US-SUN PHARMACEUTICAL INDUSTRIES LTD-2025R1-497191

PATIENT
  Age: 86 Year
  Sex: Female

DRUGS (3)
  1. NOREPINEPHRINE BITARTRATE [Suspect]
     Active Substance: NOREPINEPHRINE BITARTRATE
     Indication: Hyperglycaemic hyperosmolar nonketotic syndrome
     Route: 065
  2. CALCIUM GLUCONATE [Suspect]
     Active Substance: CALCIUM GLUCONATE
     Indication: Hyperglycaemic hyperosmolar nonketotic syndrome
     Route: 065
  3. DOPAMINE [Suspect]
     Active Substance: DOPAMINE HYDROCHLORIDE
     Indication: Hyperglycaemic hyperosmolar nonketotic syndrome
     Route: 065

REACTIONS (3)
  - Atrial fibrillation [Unknown]
  - Delirium [Unknown]
  - Cardiac failure congestive [Unknown]
